FAERS Safety Report 5701633-2 (Version None)
Quarter: 2008Q2

REPORT INFORMATION
  Report Type: 
  Country: None (occurrence: None)
  Receive Date: 20080411
  Receipt Date: 20080402
  Transmission Date: 20081010
  Serious: Yes (Other)
  Sender: FDA-Public Use
  Company Number: GB-RANBAXY-2008RR-14232

PATIENT

DRUGS (10)
  1. CLARITHROMYCIN [Suspect]
     Indication: LOWER RESPIRATORY TRACT INFECTION
     Dosage: 500 MG, BID
     Route: 048
  2. AZATHIOPRINE [Concomitant]
  3. CALCIUM-SANDOZ AMPUOLES [Concomitant]
  4. FUROSEMIDE [Concomitant]
     Indication: CARDIAC FAILURE
     Dosage: UNK
     Dates: start: 20070101
  5. MIXTARD HUMAN 70/30 [Concomitant]
  6. PREDNISOLONE [Concomitant]
  7. RAMIPRIL [Concomitant]
     Indication: BLOOD PRESSURE INCREASED
  8. SIMVASTATIN [Concomitant]
  9. TIMOLOL MALEATE [Concomitant]
  10. EFAMEVA [Concomitant]
     Route: 047

REACTIONS (2)
  - DEAFNESS [None]
  - LOWER RESPIRATORY TRACT INFECTION [None]
